FAERS Safety Report 19986588 (Version 2)
Quarter: 2022Q1

REPORT INFORMATION
  Report Type: Spontaneous
  Country: DE (occurrence: DE)
  Receive Date: 20211022
  Receipt Date: 20220201
  Transmission Date: 20220424
  Serious: Yes (Hospitalization, Other)
  Sender: FDA-Public Use
  Company Number: DE-OTSUKA-2021_035619

PATIENT
  Age: 24 Year
  Sex: Male

DRUGS (13)
  1. ABILIFY MAINTENA [Suspect]
     Active Substance: ARIPIPRAZOLE
     Indication: Schizophrenia
     Dosage: 2X400MG ABILIFY MAINTENA INJECTION ON ONE DAY, THEN 3RD INJECTION)
     Route: 065
  2. ABILIFY MAINTENA [Suspect]
     Active Substance: ARIPIPRAZOLE
     Dosage: 400 MG
     Route: 065
  3. ABILIFY [Suspect]
     Active Substance: ARIPIPRAZOLE
     Indication: Schizophrenia
     Dosage: 5 MG
     Route: 048
  4. ABILIFY [Suspect]
     Active Substance: ARIPIPRAZOLE
     Dosage: 10 MG
     Route: 065
     Dates: start: 202012
  5. ABILIFY [Suspect]
     Active Substance: ARIPIPRAZOLE
     Dosage: 15 MG, QD
     Route: 065
     Dates: start: 202106
  6. ABILIFY [Suspect]
     Active Substance: ARIPIPRAZOLE
     Dosage: 20 MG
     Route: 065
     Dates: start: 202103
  7. ARIPIPRAZOLE [Suspect]
     Active Substance: ARIPIPRAZOLE
     Indication: Schizophrenia
     Dosage: 7.5 MG, TID (DOSAGE SCHEME: 1-1-1)
     Route: 065
  8. PALIPERIDONE PALMITATE [Concomitant]
     Active Substance: PALIPERIDONE PALMITATE
     Indication: Schizophrenia
     Dosage: DEPOT 75 MG
     Route: 065
     Dates: start: 202012
  9. PALIPERIDONE PALMITATE [Concomitant]
     Active Substance: PALIPERIDONE PALMITATE
     Indication: Schizophrenia
     Dosage: 263 MG
     Route: 065
     Dates: start: 202103
  10. SERTRALINE [Concomitant]
     Active Substance: SERTRALINE HYDROCHLORIDE
     Indication: Schizophrenia
     Dosage: 75 MG
     Route: 065
     Dates: start: 202103
  11. LORAZEPAM ALPHARMA [Concomitant]
     Indication: Schizophrenia
     Dosage: 0.5 MG
     Route: 065
  12. PIPAMPERONE [Concomitant]
     Active Substance: PIPAMPERONE
     Indication: Product used for unknown indication
     Dosage: 40 MG, TID
     Route: 065
  13. OLANZAPINE [Concomitant]
     Active Substance: OLANZAPINE
     Indication: Product used for unknown indication
     Dosage: 20 MG

REACTIONS (16)
  - Neuroleptic malignant syndrome [Recovered/Resolved]
  - Rhabdomyolysis [Recovered/Resolved]
  - Hyperhidrosis [Recovered/Resolved]
  - Renal disorder [Recovered/Resolved]
  - Blood creatine phosphokinase MB increased [Recovered/Resolved]
  - Chills [Recovered/Resolved]
  - Blood lactate dehydrogenase increased [Recovered/Resolved]
  - Thirst [Recovered/Resolved]
  - Malaise [Recovered/Resolved]
  - Blood creatine phosphokinase increased [Recovered/Resolved]
  - Alanine aminotransferase increased [Recovered/Resolved]
  - Aspartate aminotransferase increased [Recovered/Resolved]
  - Product prescribing error [Unknown]
  - Drug ineffective [Recovering/Resolving]
  - Overdose [Recovered/Resolved]
  - Product use in unapproved indication [Unknown]

NARRATIVE: CASE EVENT DATE: 20210101
